FAERS Safety Report 18054998 (Version 1)
Quarter: 2020Q3

REPORT INFORMATION
  Report Type: Spontaneous
  Country: US (occurrence: US)
  Receive Date: 20200721
  Receipt Date: 20200721
  Transmission Date: 20201103
  Serious: No
  Sender: FDA-Public Use
  Company Number: None

PATIENT
  Age: 51 Year
  Sex: Female

DRUGS (16)
  1. CALCIUM+D [Concomitant]
     Active Substance: CALCIUM\VITAMIN D
  2. ESCITALOPRAM [Concomitant]
     Active Substance: ESCITALOPRAM OXALATE
  3. TRAZODONE [Concomitant]
     Active Substance: TRAZODONE HYDROCHLORIDE
  4. HYDROXYCHLOR [Concomitant]
     Active Substance: HYDROXYCHLOROQUINE
  5. METHOTREXATE. [Concomitant]
     Active Substance: METHOTREXATE
  6. IRON [Concomitant]
     Active Substance: IRON
  7. MAGNESIUM [Concomitant]
     Active Substance: MAGNESIUM
  8. HUMIRA [Suspect]
     Active Substance: ADALIMUMAB
     Indication: RHEUMATOID ARTHRITIS
     Dosage: ?          OTHER DOSE:1 PEN;?
     Route: 058
     Dates: start: 20190129
  9. FOLIC ACID. [Concomitant]
     Active Substance: FOLIC ACID
  10. PIROXICAM. [Concomitant]
     Active Substance: PIROXICAM
  11. BUPROPION. [Concomitant]
     Active Substance: BUPROPION
  12. DIGESTIVE ENZYME [Concomitant]
     Active Substance: UNSPECIFIED INGREDIENT
  13. FOSAMAX [Concomitant]
     Active Substance: ALENDRONATE SODIUM
  14. GABAPENTIN. [Concomitant]
     Active Substance: GABAPENTIN
  15. METHOCARBAM [Concomitant]
     Active Substance: METHOCARBAMOL
  16. TERBINAFINE. [Concomitant]
     Active Substance: TERBINAFINE

REACTIONS (2)
  - Anaesthetic complication [None]
  - Adverse reaction [None]

NARRATIVE: CASE EVENT DATE: 20200721
